FAERS Safety Report 15935246 (Version 1)
Quarter: 2019Q1

REPORT INFORMATION
  Report Type: Spontaneous
  Country: US (occurrence: US)
  Receive Date: 20190207
  Receipt Date: 20190207
  Transmission Date: 20190417
  Serious: No
  Sender: FDA-Public Use
  Company Number: US-ASTRAZENECA-2019SE06631

PATIENT
  Sex: Female

DRUGS (1)
  1. SYMBICORT [Suspect]
     Active Substance: BUDESONIDE\FORMOTEROL FUMARATE DIHYDRATE
     Route: 055

REACTIONS (5)
  - Oropharyngeal pain [Unknown]
  - Dysphonia [Not Recovered/Not Resolved]
  - Laryngitis [Unknown]
  - Gastrooesophageal reflux disease [Unknown]
  - Laryngeal haemorrhage [Unknown]
